FAERS Safety Report 17931029 (Version 3)
Quarter: 2021Q3

REPORT INFORMATION
  Report Type: Report from Study
  Country: CA (occurrence: CA)
  Receive Date: 20200623
  Receipt Date: 20210824
  Transmission Date: 20211014
  Serious: Yes (Hospitalization)
  Sender: FDA-Public Use
  Company Number: PHHY2015CA005130

PATIENT
  Age: 60 Year
  Sex: Female

DRUGS (17)
  1. PANTOLOC [Concomitant]
     Active Substance: PANTOPRAZOLE SODIUM
     Indication: PRODUCT USED FOR UNKNOWN INDICATION
     Dosage: 1 DF, QD
     Route: 048
  2. SANDOSTATIN LAR DEPOT [Suspect]
     Active Substance: OCTREOTIDE ACETATE
     Dosage: 40 MG, EVERY 3 WEEKS
     Route: 030
     Dates: start: 20100920, end: 20110518
  3. GLIVEC [Concomitant]
     Active Substance: IMATINIB MESYLATE
     Indication: GASTROINTESTINAL STROMAL TUMOUR
     Dosage: 400 MG, QID
     Route: 065
  4. PANTOPRAZOLE [Concomitant]
     Active Substance: PANTOPRAZOLE
     Indication: PRODUCT USED FOR UNKNOWN INDICATION
     Dosage: 1 DF, BID
     Route: 048
  5. VITAMIN D [Concomitant]
     Active Substance: VITAMIN D NOS
     Indication: PRODUCT USED FOR UNKNOWN INDICATION
     Dosage: 1 DF, OT (10000 UNIT S)
     Route: 048
  6. PEPTAMEN [Concomitant]
     Indication: PRODUCT USED FOR UNKNOWN INDICATION
     Dosage: 1.5 UNK, BID
     Route: 048
  7. VITAMIN B1 [Concomitant]
     Active Substance: THIAMINE HYDROCHLORIDE
     Indication: PRODUCT USED FOR UNKNOWN INDICATION
     Dosage: 50 UNK, QD
     Route: 048
  8. SANDOSTATIN LAR DEPOT [Suspect]
     Active Substance: OCTREOTIDE ACETATE
     Indication: GASTROINTESTINAL STROMAL TUMOUR
     Dosage: 30 MG, QMO (EVERY 4 WEEKS)
     Route: 065
     Dates: start: 20071011, end: 20100920
  9. DEXILANT [Concomitant]
     Active Substance: DEXLANSOPRAZOLE
     Indication: PRODUCT USED FOR UNKNOWN INDICATION
     Dosage: UNK
     Route: 065
  10. SANDOSTATIN LAR DEPOT [Suspect]
     Active Substance: OCTREOTIDE ACETATE
     Dosage: 40 MG, EVERY 3 TO 4 WEEKS
     Route: 030
     Dates: start: 20110518, end: 20150728
  11. SANDOSTATIN LAR DEPOT [Suspect]
     Active Substance: OCTREOTIDE ACETATE
     Dosage: 40 MG, EVERY 3 WEEKS
     Route: 030
     Dates: start: 20150728
  12. LETROZOLE SANDOZ [Concomitant]
     Active Substance: LETROZOLE
     Indication: PRODUCT USED FOR UNKNOWN INDICATION
     Dosage: 1 DF, QD
     Route: 048
  13. CONSTELLA [Concomitant]
     Active Substance: LINACLOTIDE
     Indication: PRODUCT USED FOR UNKNOWN INDICATION
     Dosage: 1 DF, QD
     Route: 048
  14. METFORMIN [Concomitant]
     Active Substance: METFORMIN HYDROCHLORIDE
     Indication: PRODUCT USED FOR UNKNOWN INDICATION
     Dosage: 1 DF, BID
     Route: 048
  15. SANDOSTATIN LAR DEPOT [Suspect]
     Active Substance: OCTREOTIDE ACETATE
     Dosage: 40 MG, Q3W
     Route: 030
  16. MEGACE [Concomitant]
     Active Substance: MEGESTROL ACETATE
     Indication: HORMONE LEVEL ABNORMAL
     Dosage: UNK
     Route: 048
  17. JAMP CALCIUM [Concomitant]
     Indication: PRODUCT USED FOR UNKNOWN INDICATION
     Dosage: 1 DF, BID
     Route: 048

REACTIONS (12)
  - Fall [Unknown]
  - Intestinal obstruction [Unknown]
  - Arthralgia [Unknown]
  - Constipation [Unknown]
  - Influenza [Unknown]
  - Inappropriate schedule of product administration [Unknown]
  - Blood pressure systolic increased [Unknown]
  - Diarrhoea [Unknown]
  - Wrong technique in device usage process [Unknown]
  - Product use in unapproved indication [Unknown]
  - Headache [Unknown]
  - Needle issue [Unknown]

NARRATIVE: CASE EVENT DATE: 20071011
